FAERS Safety Report 4579926-4 (Version None)
Quarter: 2005Q1

REPORT INFORMATION
  Report Type: 
  Country: None (occurrence: None)
  Receive Date: 20050211
  Receipt Date: 20050211
  Transmission Date: 20050727
  Serious: Yes (Death)
  Sender: FDA-Public Use
  Company Number: None

PATIENT
  Age: 52 Year

DRUGS (1)
  1. XAGRID 0.5MG(ANAGRELIDE HYDROCHLORIDE, ANAGRELIDE HYDROCHLORIDE) CAPSU [Suspect]
     Indication: ESSENTIAL THROMBOCYTHAEMIA

REACTIONS (1)
  - SUDDEN CARDIAC DEATH [None]
